FAERS Safety Report 4735437-4 (Version None)
Quarter: 2005Q3

REPORT INFORMATION
  Report Type: 
  Country: None (occurrence: None)
  Receive Date: 20050805
  Receipt Date: 20050726
  Transmission Date: 20060218
  Serious: Yes (Hospitalization)
  Sender: FDA-Public Use
  Company Number: CA-JNJFOC-20050706029

PATIENT
  Sex: Female
  Weight: 59.6 kg

DRUGS (20)
  1. REMICADE [Suspect]
     Route: 042
  2. REMICADE [Suspect]
     Indication: ANKYLOSING SPONDYLITIS
     Route: 042
  3. CALCIUM GLUCONATE [Concomitant]
     Indication: NUTRITIONAL SUPPORT
     Route: 048
  4. FOSAMAX [Concomitant]
     Indication: NUTRITIONAL SUPPORT
     Route: 048
  5. FERROUS SULFATE TAB [Concomitant]
     Indication: NUTRITIONAL SUPPORT
     Route: 048
  6. ALBUTEROL SULFATE HFA [Concomitant]
     Indication: ASTHMA
     Route: 055
  7. VITAMIN E [Concomitant]
     Indication: DRY SKIN
     Route: 061
  8. NAPROXEN [Concomitant]
     Indication: ANKYLOSING SPONDYLITIS
     Route: 048
  9. VALPROIC ACID [Concomitant]
     Indication: CONVULSION
     Route: 048
  10. VALPROIC ACID [Concomitant]
     Route: 048
  11. NEXIUM [Concomitant]
     Indication: GASTROINTESTINAL DISORDER THERAPY
     Route: 048
  12. METHOTREXATE [Concomitant]
     Indication: ANKYLOSING SPONDYLITIS
     Route: 058
  13. HYDROMORPHCONTIN [Concomitant]
     Indication: ANKYLOSING SPONDYLITIS
     Route: 048
  14. CALCIPOTRIENE [Concomitant]
     Indication: ANKYLOSING SPONDYLITIS
     Route: 061
  15. PREDNISONE [Concomitant]
     Indication: ANKYLOSING SPONDYLITIS
     Route: 048
  16. FOLIC ACID [Concomitant]
     Dosage: 5 MG 6/7 DAYS
     Route: 048
  17. DILAUDID [Concomitant]
     Indication: PAIN
     Route: 048
  18. SERAX [Concomitant]
     Route: 048
  19. DILANTIN [Concomitant]
     Indication: CONVULSION
  20. CELEXA [Concomitant]
     Indication: DEPRESSION

REACTIONS (4)
  - DYSPNOEA [None]
  - FEELING ABNORMAL [None]
  - HERPES VIRUS INFECTION [None]
  - VOMITING [None]
